FAERS Safety Report 5032054-6 (Version None)
Quarter: 2006Q2

REPORT INFORMATION
  Report Type: 
  Country: None (occurrence: None)
  Receive Date: 20060616
  Receipt Date: 20060609
  Transmission Date: 20061013
  Serious: Yes (Hospitalization)
  Sender: FDA-Public Use
  Company Number: CHPA2006US02913

PATIENT
  Age: 31 Year
  Sex: Male
  Weight: 47.6 kg

DRUGS (1)
  1. NODOZ (NCH) (CAFFEINE) CAPLET [Suspect]
     Indication: SOMNOLENCE
     Dosage: 2 DF, ONCE/SINGLE, ORAL
     Route: 048
     Dates: start: 20060313, end: 20060313

REACTIONS (20)
  - ABNORMAL BEHAVIOUR [None]
  - ANXIETY [None]
  - ARTHRALGIA [None]
  - ASTHENIA [None]
  - CONSCIOUSNESS FLUCTUATING [None]
  - DYSKINESIA [None]
  - EMOTIONAL DISORDER [None]
  - FEAR [None]
  - HYPERVENTILATION [None]
  - INSOMNIA [None]
  - LOGORRHOEA [None]
  - MENTAL DISORDER [None]
  - MUSCLE RIGIDITY [None]
  - MUSCLE SPASMS [None]
  - PARAESTHESIA [None]
  - PARAESTHESIA ORAL [None]
  - PSYCHOMOTOR HYPERACTIVITY [None]
  - SCREAMING [None]
  - THINKING ABNORMAL [None]
  - TREMOR [None]
